FAERS Safety Report 22300300 (Version 12)
Quarter: 2025Q1

REPORT INFORMATION
  Report Type: Spontaneous
  Country: CA (occurrence: CA)
  Receive Date: 20230509
  Receipt Date: 20250129
  Transmission Date: 20250408
  Serious: Yes (Other)
  Sender: PFIZER
  Company Number: CA-PFIZER INC-202201213010

PATIENT
  Age: 39 Year
  Sex: Female
  Weight: 77 kg

DRUGS (44)
  1. RUXIENCE [Suspect]
     Active Substance: RITUXIMAB-PVVR
     Indication: Sjogren^s syndrome
     Route: 042
     Dates: start: 20221201
  2. RUXIENCE [Suspect]
     Active Substance: RITUXIMAB-PVVR
     Route: 042
     Dates: start: 20221201
  3. RUXIENCE [Suspect]
     Active Substance: RITUXIMAB-PVVR
     Route: 042
     Dates: start: 20221201, end: 20221214
  4. RUXIENCE [Suspect]
     Active Substance: RITUXIMAB-PVVR
     Route: 042
     Dates: start: 20221214
  5. RUXIENCE [Suspect]
     Active Substance: RITUXIMAB-PVVR
     Route: 042
     Dates: start: 20230502
  6. RUXIENCE [Suspect]
     Active Substance: RITUXIMAB-PVVR
     Route: 042
     Dates: start: 20230523
  7. RUXIENCE [Suspect]
     Active Substance: RITUXIMAB-PVVR
     Route: 042
     Dates: start: 20231108
  8. RUXIENCE [Suspect]
     Active Substance: RITUXIMAB-PVVR
     Route: 042
     Dates: start: 20231122
  9. RUXIENCE [Suspect]
     Active Substance: RITUXIMAB-PVVR
     Route: 042
     Dates: start: 20240514
  10. RUXIENCE [Suspect]
     Active Substance: RITUXIMAB-PVVR
     Route: 042
     Dates: start: 20240529, end: 20240529
  11. RUXIENCE [Suspect]
     Active Substance: RITUXIMAB-PVVR
     Route: 042
     Dates: start: 20241218
  12. ACETAMINOPHEN [Concomitant]
     Active Substance: ACETAMINOPHEN
     Indication: Premedication
     Route: 048
     Dates: start: 20221201, end: 20221201
  13. ACETAMINOPHEN [Concomitant]
     Active Substance: ACETAMINOPHEN
     Route: 048
     Dates: start: 20231108, end: 20231108
  14. ARAVA [Concomitant]
     Active Substance: LEFLUNOMIDE
     Route: 048
  15. FLUTICASONE FUROATE [Concomitant]
     Active Substance: FLUTICASONE FUROATE
  16. FLUTICASONE FUROATE [Concomitant]
     Active Substance: FLUTICASONE FUROATE
  17. FLUTICASONE FUROATE [Concomitant]
     Active Substance: FLUTICASONE FUROATE
     Route: 065
  18. CALCIUM CARBONATE\CHOLECALCIFEROL [Concomitant]
     Active Substance: CALCIUM CARBONATE\CHOLECALCIFEROL
     Route: 048
  19. CELEBREX [Concomitant]
     Active Substance: CELECOXIB
     Dosage: UNK, 2X/DAY
  20. CELEBREX [Concomitant]
     Active Substance: CELECOXIB
     Dosage: 100 MG, 2X/DAY
     Route: 065
  21. CLONAZEPAM [Concomitant]
     Active Substance: CLONAZEPAM
  22. CLONAZEPAM [Concomitant]
     Active Substance: CLONAZEPAM
  23. CLONAZEPAM [Concomitant]
     Active Substance: CLONAZEPAM
     Route: 065
  24. DIPHENHYDRAMINE [Concomitant]
     Active Substance: DIPHENHYDRAMINE
     Indication: Premedication
     Route: 048
     Dates: start: 20221201, end: 20221201
  25. DIPHENHYDRAMINE [Concomitant]
     Active Substance: DIPHENHYDRAMINE
     Route: 048
     Dates: start: 20231108, end: 20231108
  26. HYDROCHLOROTHIAZIDE [Concomitant]
     Active Substance: HYDROCHLOROTHIAZIDE
  27. METHYLPREDNISOLONE [Concomitant]
     Active Substance: METHYLPREDNISOLONE
     Indication: Premedication
     Route: 042
     Dates: start: 20221201, end: 20221201
  28. METHYLPREDNISOLONE [Concomitant]
     Active Substance: METHYLPREDNISOLONE
     Route: 042
     Dates: start: 20231108, end: 20231108
  29. PLAQUENIL [Concomitant]
     Active Substance: HYDROXYCHLOROQUINE SULFATE
     Dosage: UNK, 2X/DAY
  30. PLAQUENIL [Concomitant]
     Active Substance: HYDROXYCHLOROQUINE SULFATE
     Dosage: 200 MG, 2X/DAY
     Route: 048
  31. GRAMICIDIN\POLYMYXIN B [Concomitant]
     Active Substance: GRAMICIDIN\POLYMYXIN B
  32. GRAMICIDIN\POLYMYXIN B [Concomitant]
     Active Substance: GRAMICIDIN\POLYMYXIN B
  33. GRAMICIDIN\POLYMYXIN B [Concomitant]
     Active Substance: GRAMICIDIN\POLYMYXIN B
     Route: 065
  34. PRAMIPEXOLE [Concomitant]
     Active Substance: PRAMIPEXOLE
  35. PRAMIPEXOLE [Concomitant]
     Active Substance: PRAMIPEXOLE
     Route: 048
  36. PRAMIPEXOLE [Concomitant]
     Active Substance: PRAMIPEXOLE
     Route: 048
  37. CETIRIZINE HYDROCHLORIDE [Concomitant]
     Active Substance: CETIRIZINE HYDROCHLORIDE
     Indication: Premedication
     Dates: start: 20231122, end: 20231122
  38. CETIRIZINE HYDROCHLORIDE [Concomitant]
     Active Substance: CETIRIZINE HYDROCHLORIDE
     Dates: start: 20240529, end: 20240529
  39. SALAGEN [Concomitant]
     Active Substance: PILOCARPINE HYDROCHLORIDE
     Dosage: UNK, 2X/DAY
  40. SALAGEN [Concomitant]
     Active Substance: PILOCARPINE HYDROCHLORIDE
     Route: 048
  41. WELLBUTRIN [Concomitant]
     Active Substance: BUPROPION HYDROCHLORIDE
  42. WELLBUTRIN [Concomitant]
     Active Substance: BUPROPION HYDROCHLORIDE
     Route: 048
  43. ZOPICLONE [Concomitant]
     Active Substance: ZOPICLONE
  44. ZOPICLONE [Concomitant]
     Active Substance: ZOPICLONE
     Route: 048

REACTIONS (27)
  - Pneumonia [Recovered/Resolved]
  - Paraesthesia oral [Recovered/Resolved]
  - Throat tightness [Recovered/Resolved]
  - Influenza [Recovering/Resolving]
  - Therapeutic response shortened [Unknown]
  - Pharyngeal paraesthesia [Recovered/Resolved]
  - Throat tightness [Recovered/Resolved]
  - Pharyngeal swelling [Recovered/Resolved]
  - Fatigue [Recovered/Resolved]
  - Cough [Recovered/Resolved]
  - Fatigue [Not Recovered/Not Resolved]
  - Anxiety [Unknown]
  - Peripheral swelling [Unknown]
  - Pain in extremity [Not Recovered/Not Resolved]
  - Headache [Unknown]
  - Nausea [Unknown]
  - Joint stiffness [Not Recovered/Not Resolved]
  - Back pain [Recovering/Resolving]
  - Dyspnoea [Recovering/Resolving]
  - Gait disturbance [Not Recovered/Not Resolved]
  - Laryngeal pain [Recovered/Resolved]
  - Pharyngeal paraesthesia [Recovered/Resolved]
  - Pharyngeal oedema [Recovered/Resolved]
  - Palatal oedema [Recovered/Resolved]
  - Throat irritation [Recovered/Resolved]
  - Off label use [Unknown]
  - Drug effective for unapproved indication [Unknown]

NARRATIVE: CASE EVENT DATE: 20221201
